FAERS Safety Report 5424356-6 (Version None)
Quarter: 2007Q3

REPORT INFORMATION
  Report Type: 
  Country: None (occurrence: None)
  Receive Date: 20070822
  Receipt Date: 20070730
  Transmission Date: 20080115
  Serious: Yes (Other)
  Sender: FDA-Public Use
  Company Number: 6036669

PATIENT
  Age: 70 Year
  Sex: Female

DRUGS (13)
  1. MELOXICAM [Suspect]
     Indication: DRUG USE FOR UNKNOWN INDICATION
     Dosage: 7,5 MG (7,5 MG,1 IN 1 D) ORAL
     Route: 048
     Dates: start: 20070404, end: 20070606
  2. ACCOMPLIA (RIMONABANT) [Suspect]
     Indication: OBESITY
     Dosage: 20 MG (20 MG,1 IN 1 D) ORAL
     Route: 048
     Dates: start: 20070307, end: 20070606
  3. ATROVENT [Concomitant]
  4. FELDENE [Concomitant]
  5. LEVOTHIROXINE (LEVOTHIROXINE) [Concomitant]
  6. METFORMIN HCL [Concomitant]
  7. MIZOLASTINE (MIZOLASTINE) [Concomitant]
  8. MOMETASONE (MOMETASONE) [Concomitant]
  9. NEDOCROMIL SODIUM (NEDOCROAIIL SODIUM) [Concomitant]
  10. QVAR (BECLONETASONE DIPROPIONATE) [Concomitant]
  11. SENNA (SENNA ALEXANDRINA) [Concomitant]
  12. TEMAZEPAM [Concomitant]
  13. ZOPICLONE (ZOPICLONE) [Concomitant]

REACTIONS (7)
  - CARDIAC FLUTTER [None]
  - DIARRHOEA [None]
  - EPISTAXIS [None]
  - FATIGUE [None]
  - HEART RATE INCREASED [None]
  - HYPERTENSION [None]
  - TREMOR [None]
